FAERS Safety Report 15635734 (Version 2)
Quarter: 2018Q4

REPORT INFORMATION
  Report Type: Report from Study
  Country: US (occurrence: US)
  Receive Date: 20181120
  Receipt Date: 20181129
  Transmission Date: 20190205
  Serious: No
  Sender: FDA-Public Use
  Company Number: US-ELI_LILLY_AND_COMPANY-US201811007352

PATIENT
  Sex: Female

DRUGS (2)
  1. TERIPARATIDE [Suspect]
     Active Substance: TERIPARATIDE
     Indication: PRODUCT USED FOR UNKNOWN INDICATION
     Dosage: UNK
     Route: 065
     Dates: start: 201802
  2. MINERAL OIL. [Suspect]
     Active Substance: MINERAL OIL
     Indication: INFECTION PROPHYLAXIS
     Route: 001

REACTIONS (6)
  - Dental caries [Unknown]
  - Musculoskeletal pain [Unknown]
  - Nausea [Unknown]
  - Chromaturia [Unknown]
  - Hypoacusis [Unknown]
  - Musculoskeletal discomfort [Not Recovered/Not Resolved]
